FAERS Safety Report 6107808-5 (Version None)
Quarter: 2009Q1

REPORT INFORMATION
  Report Type: 
  Country: None (occurrence: None)
  Receive Date: 20090309
  Receipt Date: 20090304
  Transmission Date: 20090719
  Serious: Yes (Hospitalization)
  Sender: FDA-Public Use
  Company Number: B0563122A

PATIENT
  Age: 99 Year
  Sex: Female

DRUGS (4)
  1. AUGMENTIN '125' [Suspect]
     Indication: LUNG INFECTION
     Dosage: 1G TWICE PER DAY
     Route: 048
     Dates: start: 20090115, end: 20090124
  2. ROCEPHIN [Suspect]
     Indication: LUNG INFECTION
     Dosage: 1G PER DAY
     Route: 030
     Dates: start: 20090124, end: 20090127
  3. CEFPODOXIME PROXETIL [Suspect]
     Indication: BRONCHITIS
     Dosage: 100MG TWICE PER DAY
     Route: 048
     Dates: start: 20090105, end: 20090113
  4. SOLU-MEDROL [Concomitant]
     Route: 065
     Dates: start: 20090124, end: 20090125

REACTIONS (4)
  - DIARRHOEA [None]
  - GASTROINTESTINAL DISORDER [None]
  - PSEUDOMEMBRANOUS COLITIS [None]
  - PYREXIA [None]
